FAERS Safety Report 5978148-X (Version None)
Quarter: 2008Q4

REPORT INFORMATION
  Report Type: 
  Country: None (occurrence: None)
  Receive Date: 20081126
  Receipt Date: 20081121
  Transmission Date: 20090506
  Serious: Yes (Death, Hospitalization, Other)
  Sender: FDA-Public Use
  Company Number: 2008SP023833

PATIENT
  Age: 65 Year
  Sex: Male
  Weight: 118 kg

DRUGS (2)
  1. TEMODAR [Suspect]
     Indication: GLIOBLASTOMA MULTIFORME
     Dosage: ;PO
     Route: 048
     Dates: start: 20070523
  2. DECADRON [Suspect]
     Indication: DRUG USE FOR UNKNOWN INDICATION

REACTIONS (14)
  - APHASIA [None]
  - BLOOD GLUCOSE DECREASED [None]
  - CARDIO-RESPIRATORY ARREST [None]
  - DEPRESSED LEVEL OF CONSCIOUSNESS [None]
  - HEADACHE [None]
  - HYPOPHAGIA [None]
  - HYPOTENSION [None]
  - NAUSEA [None]
  - NEUTROPENIA [None]
  - PERIPHERAL COLDNESS [None]
  - PNEUMONIA [None]
  - PULMONARY MASS [None]
  - RESPIRATORY DISTRESS [None]
  - SEPSIS [None]
